APPROVED DRUG PRODUCT: LEVETIRACETAM
Active Ingredient: LEVETIRACETAM
Strength: 500MG
Dosage Form/Route: TABLET;ORAL
Application: A090906 | Product #001
Applicant: LOTUS PHARMACEUTICAL CO LTD
Approved: Nov 5, 2010 | RLD: No | RS: No | Type: DISCN